FAERS Safety Report 4423192-7 (Version None)
Quarter: 2004Q3

REPORT INFORMATION
  Report Type: 
  Country: None (occurrence: None)
  Receive Date: 20040811
  Receipt Date: 20040803
  Transmission Date: 20050211
  Serious: Yes (Hospitalization)
  Sender: FDA-Public Use
  Company Number: US-BRISTOL-MYERS SQUIBB COMPANY-12660577

PATIENT
  Age: 79 Year
  Sex: Female
  Weight: 65 kg

DRUGS (6)
  1. ATENOLOL [Suspect]
     Dosage: UNKNOWN STRENGTH TWICE DAILY
     Dates: start: 20030101
  2. PLAVIX [Suspect]
     Indication: PROPHYLAXIS
     Dosage: FOR STROKE PREVENTION
     Route: 048
     Dates: start: 20030101, end: 20040726
  3. ASPIRIN [Concomitant]
     Dates: start: 20030101
  4. ZOLOFT [Concomitant]
     Dosage: 1/2 IN AM + 1/2 IN PM
     Dates: start: 20030101
  5. SYNTHROID [Concomitant]
     Dosage: UNKNOWN STRENGTH DAILY
     Dates: start: 20030101
  6. MULTIVITAMIN [Concomitant]
     Dates: start: 20030101

REACTIONS (5)
  - ANXIETY [None]
  - DIZZINESS [None]
  - ECCHYMOSIS [None]
  - FAECES DISCOLOURED [None]
  - PNEUMONIA [None]
